FAERS Safety Report 20957791 (Version 1)
Quarter: 2022Q2

REPORT INFORMATION
  Report Type: Spontaneous
  Country: FR (occurrence: FR)
  Receive Date: 20220614
  Receipt Date: 20220614
  Transmission Date: 20220721
  Serious: Yes (Other)
  Sender: FDA-Public Use
  Company Number: None

PATIENT
  Age: 46 Year
  Sex: Male
  Weight: 70 kg

DRUGS (3)
  1. VALIUM [Suspect]
     Active Substance: DIAZEPAM
     Indication: Post-traumatic stress disorder
     Dosage: 50 MG/J AU DEBUT ?PUIS PASSAGE A 30MG/J
     Route: 048
     Dates: start: 20190526
  2. VALIUM [Suspect]
     Active Substance: DIAZEPAM
  3. BUPRENORPHINE ARROW 2 mg, comprime sublingual [Concomitant]
     Indication: Product used for unknown indication

REACTIONS (2)
  - Withdrawal syndrome [Not Recovered/Not Resolved]
  - Nightmare [Unknown]

NARRATIVE: CASE EVENT DATE: 20190101
